FAERS Safety Report 18282276 (Version 1)
Quarter: 2020Q3

REPORT INFORMATION
  Report Type: Report from Study
  Country: US (occurrence: US)
  Receive Date: 20200918
  Receipt Date: 20200918
  Transmission Date: 20201103
  Serious: Yes (Hospitalization)
  Sender: FDA-Public Use
  Company Number: US-BAYER-2020-092285

PATIENT
  Age: 7 Year
  Sex: Female

DRUGS (2)
  1. NEXAVAR [Suspect]
     Active Substance: SORAFENIB
     Indication: HEPATOCELLULAR CARCINOMA
     Dosage: DAILY DOSE 200 MG
  2. NEXAVAR [Suspect]
     Active Substance: SORAFENIB
     Indication: HEPATOTOXICITY

REACTIONS (4)
  - Product administered to patient of inappropriate age [None]
  - Hospitalisation [Recovered/Resolved]
  - Medical procedure [Recovered/Resolved]
  - Off label use [None]

NARRATIVE: CASE EVENT DATE: 20200421
